FAERS Safety Report 13620027 (Version 3)
Quarter: 2017Q3

REPORT INFORMATION
  Report Type: Spontaneous
  Country: JP (occurrence: JP)
  Receive Date: 20170607
  Receipt Date: 20170716
  Transmission Date: 20171127
  Serious: Yes (Hospitalization)
  Sender: FDA-Public Use
  Company Number: JP-AMGEN-JPNSP2017085956

PATIENT
  Age: 68 Year
  Sex: Male

DRUGS (1)
  1. NESP [Suspect]
     Active Substance: DARBEPOETIN ALFA
     Indication: NEPHROGENIC ANAEMIA
     Dosage: 120 MUG, Q2WK
     Route: 058
     Dates: start: 201611

REACTIONS (2)
  - Blood erythropoietin decreased [Unknown]
  - Anti-erythropoietin antibody positive [Unknown]
